FAERS Safety Report 10184688 (Version 1)
Quarter: 2014Q2

REPORT INFORMATION
  Report Type: Spontaneous
  Country: US (occurrence: None)
  Receive Date: 20140519
  Receipt Date: 20140519
  Transmission Date: 20141212
  Serious: Yes (Other)
  Sender: FDA-Public Use
  Company Number: CM14-0027

PATIENT
  Sex: Female

DRUGS (1)
  1. PHYTONADIONE [Suspect]
     Indication: INJURY ASSOCIATED WITH DEVICE
     Dosage: NEEDLE STICK

REACTIONS (1)
  - Injury associated with device [None]
